FAERS Safety Report 6942517-1 (Version None)
Quarter: 2010Q3

REPORT INFORMATION
  Report Type: 
  Country: None (occurrence: None)
  Receive Date: 20100826
  Receipt Date: 20100819
  Transmission Date: 20110219
  Serious: Yes (Life-Threatening, Hospitalization)
  Sender: FDA-Public Use
  Company Number: BE-ELI_LILLY_AND_COMPANY-BE201006003050

PATIENT
  Sex: Female
  Weight: 86 kg

DRUGS (11)
  1. BYETTA [Suspect]
     Indication: TYPE 2 DIABETES MELLITUS
     Dosage: 10 UG, UNK
     Route: 058
     Dates: start: 20081022
  2. BYETTA [Suspect]
     Dosage: 10 UG, 2/D
     Route: 058
     Dates: start: 20100610
  3. ACETAMINOPHEN [Concomitant]
     Indication: MUSCULOSKELETAL PAIN
  4. GLUCOPHAGE [Concomitant]
  5. GLUCOVANCE [Concomitant]
     Dosage: UNK, UNKNOWN
     Route: 065
  6. ALDACTAZINE [Concomitant]
     Dosage: UNK, UNKNOWN
     Route: 065
  7. AMLODIPINE [Concomitant]
     Dosage: UNK, UNKNOWN
     Route: 065
  8. CRESTOR [Concomitant]
     Dosage: UNK, UNKNOWN
     Route: 065
  9. ASAFLOW [Concomitant]
     Dosage: UNK, UNKNOWN
     Route: 065
  10. TRITACE [Concomitant]
     Dosage: UNK, UNKNOWN
     Route: 065
  11. NORBITONE [Concomitant]
     Dosage: UNK, UNKNOWN
     Route: 065

REACTIONS (1)
  - HEPATITIS TOXIC [None]
